FAERS Safety Report 12540103 (Version 3)
Quarter: 2016Q3

REPORT INFORMATION
  Report Type: Spontaneous
  Country: US (occurrence: US)
  Receive Date: 20160708
  Receipt Date: 20160811
  Transmission Date: 20161109
  Serious: Yes (Other)
  Sender: FDA-Public Use
  Company Number: US-BAYER-2016-130022

PATIENT
  Sex: Female

DRUGS (1)
  1. CLIMARA [Suspect]
     Active Substance: ESTRADIOL
     Route: 062

REACTIONS (7)
  - Postmenopausal haemorrhage [None]
  - Menopausal symptoms [Unknown]
  - Pelvic pain [None]
  - Product adhesion issue [None]
  - Emotional disorder [None]
  - Premenstrual syndrome [None]
  - Drug ineffective [None]
